FAERS Safety Report 12177700 (Version 1)
Quarter: 2016Q1

REPORT INFORMATION
  Report Type: Spontaneous
  Country: DE (occurrence: DE)
  Receive Date: 20160314
  Receipt Date: 20160314
  Transmission Date: 20160526
  Serious: Yes (Hospitalization)
  Sender: FDA-Public Use
  Company Number: PHHY2016DE033699

PATIENT
  Age: 68 Year
  Sex: Male

DRUGS (7)
  1. NOVAMINSULFON [Concomitant]
     Active Substance: METAMIZOLE
     Indication: BONE PAIN
     Dosage: 2 G, QD
     Route: 048
  2. MORPHINE SULFATE/NALTREXONE HYDROCHLORIDE [Concomitant]
     Active Substance: MORPHINE SULFATE\NALTREXONE HYDROCHLORIDE
     Indication: BONE PAIN
     Dosage: 20 MG, QD
     Route: 048
  3. CALCILAC                           /00944201/ [Concomitant]
     Indication: SUPPORTIVE CARE
     Dosage: 2 DF, QD
     Route: 048
  4. DENOSUMAB [Concomitant]
     Active Substance: DENOSUMAB
     Indication: METASTASES TO BONE
     Dosage: 120 MG, UNK
     Route: 058
     Dates: start: 201512
  5. VOTRIENT [Suspect]
     Active Substance: PAZOPANIB HYDROCHLORIDE
     Indication: RENAL CANCER METASTATIC
     Dosage: 400 MG, QD
     Route: 048
     Dates: start: 201512
  6. TAMSULOSIN [Concomitant]
     Active Substance: TAMSULOSIN
     Indication: BENIGN PROSTATIC HYPERPLASIA
     Dosage: 0.4 MG, QD
     Route: 048
  7. VOTRIENT [Suspect]
     Active Substance: PAZOPANIB HYDROCHLORIDE
     Dosage: 800 MG, QD
     Route: 048
     Dates: start: 201601, end: 20160210

REACTIONS (1)
  - Jaundice [Not Recovered/Not Resolved]

NARRATIVE: CASE EVENT DATE: 20160210
